FAERS Safety Report 21829012 (Version 1)
Quarter: 2023Q1

REPORT INFORMATION
  Report Type: Spontaneous
  Country: US (occurrence: None)
  Receive Date: 20230105
  Receipt Date: 20230105
  Transmission Date: 20230418
  Serious: Yes (Hospitalization)
  Sender: FDA-Public Use
  Company Number: None

PATIENT
  Age: 61 Year
  Sex: Female

DRUGS (28)
  1. OPSUMIT [Suspect]
     Active Substance: MACITENTAN
     Indication: Pulmonary arterial hypertension
     Dosage: FREQUENCY : DAILY;?
     Route: 048
     Dates: start: 20181108
  2. TADALAFIL [Concomitant]
     Active Substance: TADALAFIL
  3. OMEPRAZOLE [Concomitant]
     Active Substance: OMEPRAZOLE
  4. BUMEX [Concomitant]
     Active Substance: BUMETANIDE
  5. FERROUS SULFATE [Concomitant]
     Active Substance: FERROUS SULFATE
  6. SENNOSIDES-DOCUSATE [Concomitant]
  7. ATORVASTATIN [Concomitant]
     Active Substance: ATORVASTATIN
  8. NARCAN [Concomitant]
     Active Substance: NALOXONE HYDROCHLORIDE
  9. WARFARIN [Concomitant]
     Active Substance: WARFARIN
  10. TRAMADOL [Concomitant]
     Active Substance: TRAMADOL
  11. LEVOTHYROXINE [Concomitant]
     Active Substance: LEVOTHYROXINE
  12. LIOTHYRONINE [Concomitant]
     Active Substance: LIOTHYRONINE
  13. ZOFRAN [Concomitant]
     Active Substance: ONDANSETRON HYDROCHLORIDE
  14. DIGOXIN [Concomitant]
     Active Substance: DIGOXIN
  15. ALPRAZOLAM [Concomitant]
     Active Substance: ALPRAZOLAM
  16. NYSTATIN [Concomitant]
     Active Substance: NYSTATIN
  17. ALBUTEROL SULFATE [Concomitant]
     Active Substance: ALBUTEROL SULFATE
  18. BISOPROLOL [Concomitant]
     Active Substance: BISOPROLOL
  19. POTASSIUM CHLORIDE [Concomitant]
     Active Substance: POTASSIUM CHLORIDE
  20. WIXELA INHUB [Concomitant]
     Active Substance: FLUTICASONE PROPIONATE\SALMETEROL XINAFOATE
  21. FLONASE [Concomitant]
     Active Substance: FLUTICASONE PROPIONATE
  22. MONTELUKAST [Concomitant]
     Active Substance: MONTELUKAST SODIUM
  23. ACYCLOVIR [Concomitant]
     Active Substance: ACYCLOVIR
  24. CETIRIZINE [Concomitant]
     Active Substance: CETIRIZINE HYDROCHLORIDE
  25. DICLOFENAC TOP GEL [Concomitant]
  26. ASCORBIC ACID [Concomitant]
     Active Substance: ASCORBIC ACID
  27. OXYGEN [Concomitant]
     Active Substance: OXYGEN
  28. TYLENOL [Concomitant]
     Active Substance: ACETAMINOPHEN

REACTIONS (3)
  - Left ventricular failure [None]
  - Left ventricular failure [None]
  - Respiratory failure [None]

NARRATIVE: CASE EVENT DATE: 20221220
